FAERS Safety Report 8964061 (Version 1)
Quarter: 2012Q4

REPORT INFORMATION
  Report Type: Report from Study
  Country: CA (occurrence: CA)
  Receive Date: 20121214
  Receipt Date: 20121214
  Transmission Date: 20130627
  Serious: Yes (Hospitalization)
  Sender: FDA-Public Use
  Company Number: CA-JNJFOC-20121203272

PATIENT
  Age: 37 Year
  Sex: Female
  Weight: 87 kg

DRUGS (5)
  1. REMICADE [Suspect]
     Indication: CROHN^S DISEASE
     Route: 042
     Dates: start: 20111201
  2. IMURAN [Concomitant]
     Dosage: 50 (units unspecified)
     Route: 065
  3. PANTOLOC [Concomitant]
     Dosage: 40 (units unspecified)
     Route: 065
  4. DEMEROL [Concomitant]
     Indication: PAIN
     Dosage: 50 (units unspecified)
     Route: 048
  5. FOLIC ACID [Concomitant]
     Route: 065

REACTIONS (2)
  - Ileectomy [Recovering/Resolving]
  - Fistula [Recovering/Resolving]
